FAERS Safety Report 5915680-9 (Version None)
Quarter: 2008Q3

REPORT INFORMATION
  Report Type: 
  Country: None (occurrence: None)
  Receive Date: 20080909
  Receipt Date: 20071211
  Transmission Date: 20090109
  Serious: Yes (Hospitalization, Other)
  Sender: FDA-Public Use
  Company Number: 163-20785-07120668

PATIENT
  Age: 51 Year
  Sex: Male

DRUGS (11)
  1. THALOMID [Suspect]
     Indication: MULTIPLE MYELOMA
     Dosage: 200 MG, 1 IN 1 D, ORAL
     Route: 048
     Dates: start: 20070921, end: 20071018
  2. ZOMETA [Suspect]
     Indication: DRUG USE FOR UNKNOWN INDICATION
  3. PERCOCET [Concomitant]
  4. ADVAIR DISKUS 100/50 [Concomitant]
  5. VALTREX [Concomitant]
  6. PRILOSEC [Concomitant]
  7. OXYCODONE HCL [Concomitant]
  8. CALCITRIOL [Concomitant]
  9. CEPHALEXIN [Concomitant]
  10. ALBUTEROL [Concomitant]
  11. SINGULAIR [Concomitant]

REACTIONS (2)
  - HYPOCALCAEMIA [None]
  - RASH [None]
